FAERS Safety Report 4913818-3 (Version None)
Quarter: 2006Q1

REPORT INFORMATION
  Report Type: 
  Country: None (occurrence: None)
  Receive Date: 20060210
  Receipt Date: 20060127
  Transmission Date: 20060701
  Serious: Yes (Death, Hospitalization)
  Sender: FDA-Public Use
  Company Number: L05-USA-03935-12

PATIENT
  Age: 38 Year
  Sex: Female

DRUGS (7)
  1. CELEXA [Suspect]
     Dates: start: 20041008
  2. SOMA [Suspect]
     Dosage: 30 TABLET
  3. ELAVIL [Suspect]
     Dates: start: 20040501
  4. FLUOXETINE HCL [Suspect]
  5. DIPHENHYDRAMINE [Suspect]
  6. PROMETHAZINE [Suspect]
  7. ACETAMINOPHEN [Suspect]

REACTIONS (18)
  - ARRHYTHMIA [None]
  - COMPLETED SUICIDE [None]
  - DRUG INTERACTION [None]
  - FEELING ABNORMAL [None]
  - HEART RATE INCREASED [None]
  - HEPATIC FAILURE [None]
  - HEPATIC NECROSIS [None]
  - HEPATIC STEATOSIS [None]
  - HEPATOTOXICITY [None]
  - HYPOGLYCAEMIA [None]
  - IDIOSYNCRATIC DRUG REACTION [None]
  - INTERNATIONAL NORMALISED RATIO INCREASED [None]
  - METABOLIC ACIDOSIS [None]
  - MULTIPLE DRUG OVERDOSE [None]
  - PLEURAL EFFUSION [None]
  - RENAL TUBULAR NECROSIS [None]
  - SEDATION [None]
  - TREMOR [None]
